FAERS Safety Report 11533938 (Version 1)
Quarter: 2015Q3

REPORT INFORMATION
  Report Type: Spontaneous
  Country: US (occurrence: US)
  Receive Date: 20150922
  Receipt Date: 20150922
  Transmission Date: 20151125
  Serious: No
  Sender: FDA-Public Use
  Company Number: US-SUN PHARMACEUTICAL INDUSTRIES LTD-2015SUN00673

PATIENT

DRUGS (2)
  1. CARBIDOPA + LEVODOPA ORALLY DISINTEGRATING TABS 25MG/100MG [Suspect]
     Active Substance: CARBIDOPA\LEVODOPA
     Indication: PARKINSON^S DISEASE
     Dosage: 6 DF, DAILY
     Route: 048
  2. CARBIDOPA + LEVODOPA ORALLY DISINTEGRATING TABS 25MG/100MG [Suspect]
     Active Substance: CARBIDOPA\LEVODOPA
     Indication: OFF LABEL USE

REACTIONS (2)
  - Migraine [Recovered/Resolved]
  - Therapeutic response decreased [Not Recovered/Not Resolved]

NARRATIVE: CASE EVENT DATE: 20150224
